FAERS Safety Report 13922328 (Version 1)
Quarter: 2017Q3

REPORT INFORMATION
  Report Type: Spontaneous
  Country: US (occurrence: US)
  Receive Date: 20170830
  Receipt Date: 20170830
  Transmission Date: 20171127
  Serious: Yes (Life-Threatening, Hospitalization)
  Sender: FDA-Public Use
  Company Number: PHHY2017US127144

PATIENT
  Age: 62 Year
  Sex: Female

DRUGS (1)
  1. DEXMEDETOMIDINE. [Suspect]
     Active Substance: DEXMEDETOMIDINE
     Indication: DELIRIUM TREMENS
     Route: 041

REACTIONS (5)
  - Acute respiratory distress syndrome [Recovered/Resolved]
  - Anaphylactic shock [Recovered/Resolved]
  - Skin lesion [Recovered/Resolved]
  - Hypotension [Recovered/Resolved]
  - Oropharyngeal oedema [Recovered/Resolved]
